FAERS Safety Report 7304401-3 (Version None)
Quarter: 2011Q1

REPORT INFORMATION
  Report Type: 
  Country: None (occurrence: None)
  Receive Date: 20110221
  Receipt Date: 20110209
  Transmission Date: 20110831
  Serious: Yes (Hospitalization, Other)
  Sender: FDA-Public Use
  Company Number: US-ELI_LILLY_AND_COMPANY-US201101002792

PATIENT
  Sex: Female

DRUGS (8)
  1. NOVOLOG [Concomitant]
     Dosage: 3 UL, 3/D
  2. LANTUS [Concomitant]
     Dosage: 10 UL, UNK
  3. PREVACID [Concomitant]
  4. VICODIN [Concomitant]
  5. VITAMIN D [Concomitant]
  6. FORTEO [Suspect]
     Dosage: 20 UG, DAILY (1/D)
     Dates: start: 20110206
  7. FORTEO [Suspect]
     Indication: OSTEOPOROSIS
     Dosage: 20 UG, DAILY (1/D)
     Dates: start: 20101201, end: 20110131
  8. POTASSIUM [Concomitant]

REACTIONS (8)
  - OEDEMA PERIPHERAL [None]
  - FEELING HOT [None]
  - PAIN [None]
  - TREMOR [None]
  - LOCALISED OEDEMA [None]
  - SLEEP DISORDER DUE TO A GENERAL MEDICAL CONDITION [None]
  - BLOOD GLUCOSE INCREASED [None]
  - RED BLOOD CELL COUNT DECREASED [None]
